FAERS Safety Report 17829780 (Version 1)
Quarter: 2020Q2

REPORT INFORMATION
  Report Type: Spontaneous
  Country: US (occurrence: US)
  Receive Date: 20200527
  Receipt Date: 20200527
  Transmission Date: 20200714
  Serious: Yes (Hospitalization, Other)
  Sender: FDA-Public Use
  Company Number: US-009507513-2005USA008496

PATIENT
  Sex: Female

DRUGS (2)
  1. KEYTRUDA [Suspect]
     Active Substance: PEMBROLIZUMAB
     Dosage: UNK, EVERY 3 WEEKS
     Dates: start: 20200310
  2. KEYTRUDA [Suspect]
     Active Substance: PEMBROLIZUMAB
     Indication: NON-SMALL CELL LUNG CANCER
     Dosage: UNK, EVERY 3 WEEKS
     Dates: start: 2019

REACTIONS (10)
  - Heart rate increased [Unknown]
  - Sedative therapy [Unknown]
  - Hypertension [Unknown]
  - Blood glucose increased [Unknown]
  - Dyspnoea [Unknown]
  - Diarrhoea [Unknown]
  - Adverse event [Unknown]
  - Adverse event [Unknown]
  - Abdominal discomfort [Unknown]
  - Dependence on respirator [Unknown]

NARRATIVE: CASE EVENT DATE: 2020
